FAERS Safety Report 5348119-5 (Version None)
Quarter: 2007Q2

REPORT INFORMATION
  Report Type: 
  Country: None (occurrence: None)
  Receive Date: 20070606
  Receipt Date: 20070604
  Transmission Date: 20071010
  Serious: Yes (Other)
  Sender: FDA-Public Use
  Company Number: GB-ROXANE LABORATORIES, INC-2007-DE-03305GD

PATIENT
  Age: 4 Day
  Weight: 2.5 kg

DRUGS (2)
  1. MORPHINE [Suspect]
     Indication: PAIN
     Route: 042
  2. LOCAL ANESTHETIC [Suspect]
     Indication: EPIDURAL ANAESTHESIA
     Route: 008

REACTIONS (3)
  - MEDICATION ERROR [None]
  - NEONATAL DISORDER [None]
  - RESPIRATORY ARREST [None]
